FAERS Safety Report 17084012 (Version 1)
Quarter: 2019Q4

REPORT INFORMATION
  Report Type: Report from Study
  Country: CO (occurrence: CO)
  Receive Date: 20191127
  Receipt Date: 20191127
  Transmission Date: 20200122
  Serious: Yes (Life-Threatening, Hospitalization, Other)
  Sender: FDA-Public Use
  Company Number: CO-BRISTOL-MYERS SQUIBB COMPANY-BMS-2018-013524

PATIENT
  Age: 63 Year
  Sex: Female

DRUGS (1)
  1. DASATINIB. [Suspect]
     Active Substance: DASATINIB
     Indication: CHRONIC MYELOID LEUKAEMIA
     Dosage: 100 MG, QD
     Route: 048
     Dates: start: 20160909, end: 20191015

REACTIONS (5)
  - Dry mouth [Recovering/Resolving]
  - Pleural effusion [Recovered/Resolved]
  - Thrombosis [Recovering/Resolving]
  - Off label use [Unknown]
  - Pulmonary oedema [Recovering/Resolving]

NARRATIVE: CASE EVENT DATE: 20180122
